FAERS Safety Report 7206443-5 (Version None)
Quarter: 2010Q4

REPORT INFORMATION
  Report Type: 
  Country: None (occurrence: None)
  Receive Date: 20101217
  Receipt Date: 20101208
  Transmission Date: 20110411
  Serious: Yes (Hospitalization, Disabling)
  Sender: FDA-Public Use
  Company Number: 2010MA005157

PATIENT
  Age: 69 Year
  Sex: Male

DRUGS (8)
  1. GABAPENTIN [Suspect]
     Indication: NEURALGIA
     Dosage: 200 MG; TID; PO
     Route: 048
     Dates: start: 20100705, end: 20101115
  2. ACETYLSALICYLIC ACID [Concomitant]
  3. CO-CODAMOL [Concomitant]
  4. SIMVASTATSN [Concomitant]
  5. BACLOFEN [Concomitant]
  6. EZETIMIBE [Concomitant]
  7. FLOXACILLIN SODIUM [Concomitant]
  8. ATENOLOL [Concomitant]

REACTIONS (2)
  - HAEMARTHROSIS [None]
  - PAIN [None]
